FAERS Safety Report 16078180 (Version 1)
Quarter: 2019Q1

REPORT INFORMATION
  Report Type: Spontaneous
  Country: US (occurrence: US)
  Receive Date: 20190315
  Receipt Date: 20190315
  Transmission Date: 20190418
  Serious: No
  Sender: FDA-Public Use
  Company Number: US-SA-2019SA066264

PATIENT
  Sex: Female
  Weight: 109.77 kg

DRUGS (2)
  1. TOUJEO [Suspect]
     Active Substance: INSULIN GLARGINE
     Dosage: 160 U, HS
     Route: 058
  2. TOUJEO [Suspect]
     Active Substance: INSULIN GLARGINE
     Indication: DIABETES MELLITUS
     Dosage: 80 U, HS
     Route: 058
     Dates: start: 2013

REACTIONS (2)
  - Diabetic neuropathy [Not Recovered/Not Resolved]
  - Drug ineffective [Unknown]
